FAERS Safety Report 11570404 (Version 2)
Quarter: 2015Q4

REPORT INFORMATION
  Report Type: Spontaneous
  Country: US (occurrence: US)
  Receive Date: 20150916
  Receipt Date: 20151027
  Transmission Date: 20160304
  Serious: No
  Sender: FDA-Public Use
  Company Number: US-ELI_LILLY_AND_COMPANY-US200909001195

PATIENT
  Sex: Female

DRUGS (3)
  1. FORTEO [Interacting]
     Active Substance: TERIPARATIDE
     Dosage: UNK, UNKNOWN
  2. ENBREL [Interacting]
     Active Substance: ETANERCEPT
     Dosage: UNK, UNKNOWN
  3. FORTEO [Suspect]
     Active Substance: TERIPARATIDE
     Dosage: UNK, UNKNOWN

REACTIONS (4)
  - Peripheral swelling [Unknown]
  - Joint swelling [Unknown]
  - Arthritis [Unknown]
  - Drug interaction [Unknown]

NARRATIVE: CASE EVENT DATE: 200908
